FAERS Safety Report 6722694-8 (Version None)
Quarter: 2010Q2

REPORT INFORMATION
  Report Type: 
  Country: None (occurrence: None)
  Receive Date: 20100512
  Receipt Date: 20100507
  Transmission Date: 20101027
  Serious: Yes (Disabling, Other)
  Sender: FDA-Public Use
  Company Number: TR-GILEAD-2010-0028710

PATIENT
  Sex: Male
  Weight: 78 kg

DRUGS (2)
  1. VIREAD [Suspect]
     Indication: HEPATITIS B
     Route: 048
     Dates: start: 20091210
  2. METOPROLOL TARTRATE [Concomitant]
     Indication: HYPERTENSION
     Route: 048

REACTIONS (5)
  - ABDOMINAL PAIN [None]
  - DYSPEPSIA [None]
  - GASTRITIS [None]
  - NAUSEA [None]
  - VOMITING [None]
